FAERS Safety Report 24531160 (Version 1)
Quarter: 2024Q4

REPORT INFORMATION
  Report Type: Spontaneous
  Country: JP (occurrence: JP)
  Receive Date: 20241022
  Receipt Date: 20241022
  Transmission Date: 20250115
  Serious: Yes (Other)
  Sender: JOHNSON AND JOHNSON
  Company Number: JP-JNJFOC-20241056511

PATIENT
  Age: 79 Year
  Sex: Male

DRUGS (6)
  1. DARATUMUMAB [Suspect]
     Active Substance: DARATUMUMAB
     Indication: Plasma cell myeloma
     Dosage: DOSE UNKNOWN
     Route: 058
  2. DARATUMUMAB [Suspect]
     Active Substance: DARATUMUMAB
     Route: 058
  3. LENALIDOMIDE [Suspect]
     Active Substance: LENALIDOMIDE
     Indication: Plasma cell myeloma
     Dosage: DOSE UNKNOWN
     Route: 048
  4. DEXAMETHASONE [Suspect]
     Active Substance: DEXAMETHASONE
     Indication: Plasma cell myeloma
     Dosage: DOSE UNKNOWN
     Route: 065
  5. DEXAMETHASONE [Suspect]
     Active Substance: DEXAMETHASONE
     Dosage: D1/2 8/9 15
     Route: 065
  6. VELCADE [Concomitant]
     Active Substance: BORTEZOMIB
     Indication: Plasma cell myeloma
     Dosage: 1.3MG/SQM, D1/8
     Route: 065

REACTIONS (3)
  - Cytomegalovirus viraemia [Unknown]
  - Neutrophil count decreased [Recovered/Resolved]
  - Haemoglobin decreased [Recovered/Resolved]
